FAERS Safety Report 9504734 (Version 1)
Quarter: 2013Q3

REPORT INFORMATION
  Report Type: Spontaneous
  Country: GB (occurrence: GB)
  Receive Date: 20130906
  Receipt Date: 20130906
  Transmission Date: 20140515
  Serious: Yes (Other)
  Sender: FDA-Public Use
  Company Number: GB-ELI_LILLY_AND_COMPANY-GB201308009749

PATIENT
  Age: 72 Year
  Sex: Female

DRUGS (3)
  1. HUMULIN 30% REGULAR, 70% NPH [Suspect]
     Indication: DIABETES MELLITUS
     Dosage: UNK, UNKNOWN
  2. VICTOZA [Concomitant]
  3. GLUCOPHAGE [Concomitant]
     Dosage: 850 MG, UNKNOWN

REACTIONS (2)
  - Breast cancer [Unknown]
  - Lymphoedema [Unknown]
